FAERS Safety Report 5737673-7 (Version None)
Quarter: 2008Q2

REPORT INFORMATION
  Report Type: 
  Country: None (occurrence: None)
  Receive Date: 20080512
  Receipt Date: 20080512
  Transmission Date: 20081010
  Serious: Yes (Other)
  Sender: FDA-Public Use
  Company Number: None

PATIENT
  Age: 36 Year
  Sex: Female
  Weight: 58.9676 kg

DRUGS (1)
  1. DIGITEK  250 MCG  BERTEK PHARM [Suspect]
     Indication: SUPRAVENTRICULAR TACHYCARDIA
     Dosage: 250 MCG ONE A DAY PO
     Route: 048
     Dates: start: 20080301, end: 20080430

REACTIONS (1)
  - INCORRECT DOSE ADMINISTERED [None]
